FAERS Safety Report 14258759 (Version 1)
Quarter: 2017Q4

REPORT INFORMATION
  Report Type: Spontaneous
  Country: HK (occurrence: HK)
  Receive Date: 20171207
  Receipt Date: 20171207
  Transmission Date: 20180321
  Serious: Yes (Other)
  Sender: FDA-Public Use
  Company Number: HK-BAYER-2017-230170

PATIENT
  Sex: Male

DRUGS (4)
  1. XOFIGO [Suspect]
     Active Substance: RADIUM RA-223 DICHLORIDE
     Indication: METASTASES TO BONE
  2. ENZALUTAMIDE [Concomitant]
     Active Substance: ENZALUTAMIDE
  3. ABIRATERONE [Concomitant]
     Active Substance: ABIRATERONE
  4. XOFIGO [Suspect]
     Active Substance: RADIUM RA-223 DICHLORIDE
     Indication: HORMONE-REFRACTORY PROSTATE CANCER
     Dosage: 55KBQ/KG EVERY 5 WEEKS
     Dates: start: 201707

REACTIONS (5)
  - Hormone-refractory prostate cancer [None]
  - Off label use [None]
  - Prostatic specific antigen abnormal [None]
  - Pelvic pain [None]
  - Lower urinary tract symptoms [None]

NARRATIVE: CASE EVENT DATE: 201711
